FAERS Safety Report 24995248 (Version 1)
Quarter: 2025Q1

REPORT INFORMATION
  Report Type: Spontaneous
  Country: BR (occurrence: BR)
  Receive Date: 20250221
  Receipt Date: 20250221
  Transmission Date: 20250409
  Serious: Yes (Death, Other)
  Sender: PFIZER
  Company Number: BR-PFIZER INC-2020110437

PATIENT
  Age: 17 Month
  Sex: Male

DRUGS (1)
  1. XALKORI [Suspect]
     Active Substance: CRIZOTINIB
     Indication: Neuroblastoma
     Dosage: 200 MG, 1X/DAY (ONE CAPSULE A DAY FOR AT LEAST 6 MONTH)
     Dates: start: 20200311

REACTIONS (5)
  - Death [Fatal]
  - Off label use [Unknown]
  - Off label use [Unknown]
  - Drug effective for unapproved indication [Unknown]
  - Wrong technique in product usage process [Unknown]

NARRATIVE: CASE EVENT DATE: 20200311
